FAERS Safety Report 5758583-5 (Version None)
Quarter: 2008Q2

REPORT INFORMATION
  Report Type: 
  Country: None (occurrence: None)
  Receive Date: 20080604
  Receipt Date: 20080530
  Transmission Date: 20081010
  Serious: Yes (Hospitalization)
  Sender: FDA-Public Use
  Company Number: B0515037A

PATIENT
  Age: 46 Year
  Sex: Female

DRUGS (3)
  1. ZANTAC [Suspect]
     Indication: PREMEDICATION
     Dosage: 50MG PER DAY
     Route: 042
     Dates: start: 20080318, end: 20080318
  2. DEXAMETHASONE SODIUM PHOSPHATE [Suspect]
     Indication: PREMEDICATION
     Dosage: 20MG PER DAY
     Route: 042
     Dates: start: 20080318, end: 20080318
  3. SEISHOKU [Concomitant]
     Indication: PREMEDICATION
     Dosage: 100ML PER DAY
     Route: 042
     Dates: start: 20080318, end: 20080318

REACTIONS (5)
  - ANAPHYLACTIC SHOCK [None]
  - DEPRESSED LEVEL OF CONSCIOUSNESS [None]
  - FATIGUE [None]
  - GENERALISED ERYTHEMA [None]
  - VOMITING [None]
